FAERS Safety Report 7872423 (Version 4)
Quarter: 2013Q3

REPORT INFORMATION
  Report Type: Report from Study
  Country: DE (occurrence: DE)
  Receive Date: 20110325
  Receipt Date: 20130722
  Transmission Date: 20140515
  Serious: Yes (Hospitalization, Other)
  Sender: FDA-Public Use
  Company Number: PHHO2009DE14208

PATIENT
  Age: 30 Year
  Sex: Male
  Weight: 82.3 kg

DRUGS (19)
  1. CGP 57148B [Suspect]
     Indication: PULMONARY ARTERIAL HYPERTENSION
     Dosage: PLACEBO
     Route: 048
     Dates: start: 20090916
  2. GLEEVEC [Suspect]
     Indication: PULMONARY ARTERIAL HYPERTENSION
     Dosage: 200 MG
  3. KALINOR [Concomitant]
  4. TRACLEER [Concomitant]
     Indication: PULMONARY ARTERIAL HYPERTENSION
     Dosage: 125 MG, BID
     Route: 048
     Dates: start: 20050819
  5. SILDENAFIL [Concomitant]
     Indication: PULMONARY ARTERIAL HYPERTENSION
     Dosage: 20 MG, TID
     Route: 048
     Dates: start: 200605, end: 20091117
  6. SILDENAFIL [Concomitant]
     Dosage: 40 MG, TID
     Route: 048
     Dates: start: 20091118
  7. MARCUMAR [Concomitant]
     Indication: PULMONARY ARTERIAL HYPERTENSION
     Dosage: PRN, ON DEMAND
     Route: 048
     Dates: start: 200508, end: 20130711
  8. PANTOZOL [Concomitant]
     Indication: GASTRITIS
     Dosage: 20 MG, BID
     Route: 048
     Dates: start: 200911, end: 20091216
  9. AMOXICILLIN [Concomitant]
     Indication: TOOTH INFECTION
  10. AMOXICILLIN [Concomitant]
     Indication: RESPIRATORY TRACT INFECTION
  11. ZITHROMAX [Concomitant]
     Indication: RESPIRATORY TRACT INFECTION
     Dosage: 250 MG, BID
     Route: 048
     Dates: start: 20090303, end: 20090305
  12. OMEPRAZOL [Concomitant]
     Indication: DYSPEPSIA
     Dosage: 20 MG, QD
     Route: 048
     Dates: start: 20111207, end: 20121105
  13. OMEPRAZOL [Concomitant]
     Dosage: 20 MG, BID
     Route: 048
     Dates: start: 20121106
  14. MIDAZOLAM [Concomitant]
     Indication: ENDOSCOPY UPPER GASTROINTESTINAL TRACT
     Dosage: 5 MG, QD
     Route: 048
     Dates: start: 20120625
  15. OXYMETHAZOLINE [Concomitant]
     Dosage: 2 MG, ON DEMAND
     Route: 045
     Dates: start: 20120720
  16. CLEXANE [Concomitant]
     Indication: THROMBOSIS PROPHYLAXIS
     Dosage: BID
     Route: 058
     Dates: start: 20121101, end: 20121102
  17. HEPARIN [Concomitant]
     Indication: THROMBOSIS PROPHYLAXIS
     Dosage: 5000 QD
     Route: 042
     Dates: start: 20121107, end: 20121107
  18. CEFAZOLIN [Concomitant]
     Indication: INFECTION PROPHYLAXIS
     Dosage: 2 G, QD
     Route: 042
     Dates: start: 20121107, end: 20121107
  19. PARACETAMOL [Concomitant]
     Indication: HEADACHE
     Dosage: 500 MG, ON DEMAND
     Route: 048

REACTIONS (7)
  - Pulmonary hypertension [Recovered/Resolved]
  - Syncope [Recovered/Resolved]
  - Chest discomfort [Recovered/Resolved]
  - Abdominal pain upper [Recovered/Resolved]
  - Malaise [Recovered/Resolved]
  - Sneezing [Recovered/Resolved]
  - Dyspepsia [Unknown]
